FAERS Safety Report 10208602 (Version 1)
Quarter: 2014Q2

REPORT INFORMATION
  Report Type: Spontaneous
  Country: GB (occurrence: GB)
  Receive Date: 20140530
  Receipt Date: 20140530
  Transmission Date: 20141212
  Serious: Yes (Hospitalization)
  Sender: FDA-Public Use
  Company Number: GB-BRISTOL-MYERS SQUIBB COMPANY-20774006

PATIENT
  Age: 84 Year
  Sex: Female
  Weight: 75 kg

DRUGS (11)
  1. APIXABAN [Suspect]
     Dates: start: 20140203
  2. LISINOPRIL [Suspect]
     Dates: start: 20140203
  3. ADIZEM [Suspect]
     Dates: start: 20140317, end: 20140501
  4. ADCAL [Concomitant]
     Dates: start: 20140203, end: 20140331
  5. ALENDRONIC ACID [Concomitant]
     Dates: start: 20140203, end: 20140501
  6. BENDROFLUMETHIAZIDE [Concomitant]
     Dates: start: 20140203
  7. BISOPROLOL [Concomitant]
     Dates: start: 20140203, end: 20140325
  8. CO-CODAMOL [Concomitant]
     Dates: start: 20140403, end: 20140404
  9. HYDROXYZINE [Concomitant]
     Dates: start: 20140409
  10. OMEPRAZOLE [Concomitant]
     Dates: start: 20140203
  11. PREDNISOLONE [Concomitant]
     Dates: start: 20140409

REACTIONS (1)
  - Erythema multiforme [Recovering/Resolving]
